FAERS Safety Report 5329819-X (Version None)
Quarter: 2007Q2

REPORT INFORMATION
  Report Type: 
  Country: None (occurrence: None)
  Receive Date: 20070517
  Receipt Date: 20070517
  Transmission Date: 20071010
  Serious: Yes (Hospitalization)
  Sender: FDA-Public Use
  Company Number: None

PATIENT
  Sex: Female

DRUGS (2)
  1. AVELOX [Suspect]
     Indication: BRONCHITIS
     Dosage: 400 MG 1 TAB PO
     Route: 048
     Dates: start: 20070407
  2. AVELOX [Suspect]
     Indication: SINUSITIS
     Dosage: 400 MG 1 TAB PO
     Route: 048
     Dates: start: 20070407

REACTIONS (7)
  - ADVERSE DRUG REACTION [None]
  - DIZZINESS [None]
  - INCOHERENT [None]
  - LOSS OF CONSCIOUSNESS [None]
  - NAUSEA [None]
  - SYNCOPE [None]
  - VOMITING [None]
